FAERS Safety Report 8544712-7 (Version None)
Quarter: 2012Q3

REPORT INFORMATION
  Report Type: 
  Country: None (occurrence: None)
  Receive Date: 20120727
  Receipt Date: 20120718
  Transmission Date: 20120928
  Serious: Yes (Other)
  Sender: FDA-Public Use
  Company Number: FR-ASTRAZENECA-2012SE51106

PATIENT
  Age: 75 Year
  Sex: Male

DRUGS (9)
  1. PLAVIX [Concomitant]
  2. UNSPECIFIED ANTI HYPERTENSIVE DRUG [Concomitant]
  3. CYMBALTA [Concomitant]
  4. RAMIPRIL [Suspect]
     Indication: PROTEINURIA
     Route: 048
     Dates: start: 20120601, end: 20120604
  5. IRBESARTAN [Concomitant]
  6. LERCANIDIPINE [Concomitant]
  7. CRESTOR [Concomitant]
     Route: 048
  8. XYLOCAINE [Suspect]
     Route: 058
     Dates: start: 20120604, end: 20120604
  9. REPAGLINIDE [Concomitant]

REACTIONS (1)
  - ANGIOEDEMA [None]
